FAERS Safety Report 12624133 (Version 1)
Quarter: 2016Q3

REPORT INFORMATION
  Report Type: Spontaneous
  Country: GB (occurrence: GB)
  Receive Date: 20160805
  Receipt Date: 20160805
  Transmission Date: 20161109
  Serious: Yes (Other)
  Sender: FDA-Public Use
  Company Number: GB-ROCHE-1439674

PATIENT
  Sex: Female

DRUGS (1)
  1. HERCEPTIN [Suspect]
     Active Substance: TRASTUZUMAB
     Indication: PRODUCT USED FOR UNKNOWN INDICATION
     Route: 058

REACTIONS (12)
  - Vomiting [Unknown]
  - Somnolence [Unknown]
  - Breast cancer recurrent [Unknown]
  - Neoplasm malignant [Unknown]
  - Pain [Unknown]
  - Micturition urgency [Unknown]
  - Insomnia [Unknown]
  - Nausea [Unknown]
  - Asthenia [Unknown]
  - Mouth ulceration [Unknown]
  - Bone pain [Unknown]
  - Sleep disorder [Unknown]
